FAERS Safety Report 6760901-6 (Version None)
Quarter: 2010Q2

REPORT INFORMATION
  Report Type: 
  Country: None (occurrence: None)
  Receive Date: 20100608
  Receipt Date: 20100602
  Transmission Date: 20101027
  Serious: Yes (Death, Hospitalization)
  Sender: FDA-Public Use
  Company Number: IT-BRISTOL-MYERS SQUIBB COMPANY-14981914

PATIENT
  Age: 76 Year
  Sex: Male

DRUGS (7)
  1. COUMADIN [Suspect]
     Dosage: INTERRUPTED ON 28OCT09 DURATION:1 YEAR
     Route: 048
  2. ASPIRIN [Suspect]
     Dosage: TABS
     Route: 048
     Dates: end: 20091028
  3. FUROSEMIDE [Concomitant]
     Dosage: TABS
     Route: 048
  4. METOPROLOL TARTRATE [Concomitant]
     Dosage: TABS
     Route: 048
  5. AMIODARONE HCL [Concomitant]
     Dosage: TABS
     Route: 048
  6. KANRENOL [Concomitant]
     Dosage: TABS
     Route: 048
  7. OMEPRAZOLE [Concomitant]
     Dosage: MODIFIED RELEASE CAPS
     Route: 048

REACTIONS (3)
  - CEREBRAL HAEMATOMA [None]
  - CIRCULATORY COLLAPSE [None]
  - MULTI-ORGAN FAILURE [None]
